FAERS Safety Report 4305473-0 (Version None)
Quarter: 2004Q1

REPORT INFORMATION
  Report Type: 
  Country: None (occurrence: None)
  Receive Date: 20040226
  Receipt Date: 20021213
  Transmission Date: 20041129
  Serious: No
  Sender: FDA-Public Use
  Company Number: US-BRISTOL-MYERS SQUIBB COMPANY-12136719

PATIENT
  Age: 39 Year
  Sex: Female
  Weight: 59 kg

DRUGS (4)
  1. ABILIFY [Suspect]
     Indication: HALLUCINATION, AUDITORY
     Route: 048
     Dates: start: 20021206
  2. ABILIFY [Suspect]
     Indication: AGGRESSION
     Route: 048
     Dates: start: 20021206
  3. PAXIL [Concomitant]
  4. TRAZODONE HCL [Concomitant]

REACTIONS (3)
  - ANXIETY [None]
  - NERVOUSNESS [None]
  - PSYCHOMOTOR HYPERACTIVITY [None]
